FAERS Safety Report 16817242 (Version 1)
Quarter: 2019Q3

REPORT INFORMATION
  Report Type: Spontaneous
  Country: NL (occurrence: NL)
  Receive Date: 20190917
  Receipt Date: 20190917
  Transmission Date: 20191005
  Serious: Yes (Disabling)
  Sender: FDA-Public Use
  Company Number: NL-MYLANLABS-2019M1086328

PATIENT
  Age: 35 Year
  Sex: Male
  Weight: 82 kg

DRUGS (13)
  1. ROSUVASTATIN. [Suspect]
     Active Substance: ROSUVASTATIN
     Indication: BLOOD CHOLESTEROL INCREASED
     Dosage: 10 MILLIGRAM, QD, 1DD1T
     Route: 048
     Dates: start: 1999, end: 20190302
  2. MORFINE [Concomitant]
     Active Substance: MORPHINE
     Dosage: 30 MG ZO NODIG (ENKELE MALEN PER MAAND)
  3. OXYCODON [Concomitant]
     Active Substance: OXYCODONE
     Dosage: 5 MG 1-4 DD
  4. PARACETAMOL [Concomitant]
     Active Substance: ACETAMINOPHEN
  5. HCT [Concomitant]
     Active Substance: HYDROCHLOROTHIAZIDE
     Dosage: 1 DD 12.5 MG
  6. METHOTREXATE (METHOTREXATE SODIUM) [Concomitant]
     Active Substance: METHOTREXATE SODIUM
     Dosage: EENS PER WEEK 20 MG
  7. SALBUTAMOL [Concomitant]
     Active Substance: ALBUTEROL
  8. LEVOCETIRIZINE                     /01530202/ [Concomitant]
     Active Substance: LEVOCETIRIZINE DIHYDROCHLORIDE
     Dosage: 1-4 DD 5 MG
  9. FOSTER [Concomitant]
     Active Substance: BECLOMETHASONE\FORMOTEROL
  10. METFORMINE                         /00082701/ [Concomitant]
     Active Substance: METFORMIN HYDROCHLORIDE
     Dosage: 4 DD 500 MG (2-1-1-)
  11. FOLIUMZUUR [Concomitant]
     Active Substance: FOLIC ACID
     Dosage: EENS PER WEEK 10 MG
  12. PANTOPRAZOL                        /01263201/ [Concomitant]
     Active Substance: PANTOPRAZOLE
     Dosage: 1 DD 40 MG
  13. DIAZEPAM. [Concomitant]
     Active Substance: DIAZEPAM
     Dosage: ZN 1-2 DD 10 MG

REACTIONS (1)
  - Back pain [Recovered/Resolved]

NARRATIVE: CASE EVENT DATE: 1999
